FAERS Safety Report 8308841-5 (Version None)
Quarter: 2012Q2

REPORT INFORMATION
  Report Type: 
  Country: None (occurrence: None)
  Receive Date: 20120420
  Receipt Date: 20120420
  Transmission Date: 20120825
  Serious: No
  Sender: FDA-Public Use
  Company Number: None

PATIENT

DRUGS (1)
  1. DILANTIN [Suspect]
     Indication: CONVULSION
     Dates: start: 20120217, end: 20120320

REACTIONS (3)
  - ANTICONVULSANT DRUG LEVEL DECREASED [None]
  - PRODUCT QUALITY ISSUE [None]
  - INHIBITORY DRUG INTERACTION [None]
